FAERS Safety Report 23241048 (Version 1)
Quarter: 2023Q4

REPORT INFORMATION
  Report Type: Report from Study
  Country: IL (occurrence: IL)
  Receive Date: 20231129
  Receipt Date: 20231129
  Transmission Date: 20240109
  Serious: Yes (Other)
  Sender: FDA-Public Use
  Company Number: IL-MYLANLABS-2023M1125332

PATIENT
  Age: 39 Year
  Sex: Female

DRUGS (4)
  1. TRASTUZUMAB [Suspect]
     Active Substance: TRASTUZUMAB
     Indication: Breast cancer stage II
     Dosage: UNK
     Route: 065
  2. PERTUZUMAB [Suspect]
     Active Substance: PERTUZUMAB
     Indication: Breast cancer stage II
     Dosage: UNK
     Route: 065
  3. CARBOPLATIN [Suspect]
     Active Substance: CARBOPLATIN
     Indication: Breast cancer stage II
     Dosage: UNK
     Route: 065
  4. DOCETAXEL [Suspect]
     Active Substance: DOCETAXEL\DOCETAXEL ANHYDROUS
     Indication: Breast cancer stage II
     Dosage: UNK
     Route: 065

REACTIONS (5)
  - Rash pruritic [Unknown]
  - Peau d^orange [Unknown]
  - Skin hyperpigmentation [Unknown]
  - Skin hypertrophy [Unknown]
  - Retracted nipple [Unknown]
